FAERS Safety Report 20617212 (Version 1)
Quarter: 2022Q1

REPORT INFORMATION
  Report Type: Spontaneous
  Country: CH (occurrence: CH)
  Receive Date: 20220321
  Receipt Date: 20220321
  Transmission Date: 20220423
  Serious: Yes (Hospitalization, Other)
  Sender: FDA-Public Use
  Company Number: None

PATIENT
  Age: 48 Year
  Sex: Female

DRUGS (16)
  1. KETALAR [Suspect]
     Active Substance: KETAMINE HYDROCHLORIDE
     Indication: Analgesic therapy
     Dosage: 40 MG
     Route: 042
     Dates: start: 20210728, end: 20210728
  2. CLINDAMYCIN PHOSPHATE [Suspect]
     Active Substance: CLINDAMYCIN PHOSPHATE
     Dosage: 600 MG
     Route: 042
     Dates: start: 20210728, end: 20210728
  3. NOVALGIN (METAMIZOLE SODIUM) [Suspect]
     Active Substance: METAMIZOLE SODIUM
     Indication: Analgesic therapy
     Dosage: 1 G
     Route: 042
     Dates: start: 20210728, end: 20210728
  4. PROPOFOL [Suspect]
     Active Substance: PROPOFOL
     Dosage: 46 MG
     Route: 042
     Dates: start: 20210728, end: 20210728
  5. FENTANYL [Suspect]
     Active Substance: FENTANYL
     Dosage: 100 UG
     Route: 042
     Dates: start: 20210728, end: 20210728
  6. REMIFENTANIL [Suspect]
     Active Substance: REMIFENTANIL
     Dosage: 316.66 UG
     Route: 042
     Dates: start: 20210728, end: 20210728
  7. LIDOCAINE HYDROCHLORIDE [Suspect]
     Active Substance: LIDOCAINE HYDROCHLORIDE
     Dosage: 40 MG
     Route: 042
     Dates: start: 20210728, end: 20210728
  8. DEXMEDETOMIDINE [Suspect]
     Active Substance: DEXMEDETOMIDINE
     Dosage: 12 UG
     Route: 042
     Dates: start: 20210728, end: 20210728
  9. EPHEDRINE HYDROCHLORIDE [Suspect]
     Active Substance: EPHEDRINE HYDROCHLORIDE
     Dosage: 30 MG
     Route: 042
     Dates: start: 20210728, end: 20210728
  10. MAGNESIUM SULFATE [Suspect]
     Active Substance: MAGNESIUM SULFATE
     Dosage: 2 G
     Route: 042
     Dates: start: 20210728, end: 20210728
  11. ONDANSETRON HYDROCHLORIDE [Suspect]
     Active Substance: ONDANSETRON HYDROCHLORIDE
     Dosage: 4 MG
     Route: 042
     Dates: start: 20210728, end: 20210728
  12. ASPIRIN [Concomitant]
     Active Substance: ASPIRIN
     Dosage: 300 MG, 1X/DAY
     Route: 048
  13. LEVOTHYROXINE [Concomitant]
     Active Substance: LEVOTHYROXINE
     Dosage: 100 UG, CYCLIC, EVERY OTHER DAY
     Route: 048
  14. EUTHYROX [Concomitant]
     Active Substance: LEVOTHYROXINE SODIUM
     Dosage: 125 UG, CYCLIC, EVERY OTHER DAY
     Route: 048
  15. NAFTAZONE [Concomitant]
     Active Substance: NAFTAZONE
     Dosage: 30 MG, 1X/DAY
     Route: 048
  16. PREMENS [VITEX AGNUS-CASTUS EXTRACT] [Concomitant]
     Dosage: 1 DF, 1X/DAY
     Route: 048

REACTIONS (1)
  - Acute generalised exanthematous pustulosis [Recovered/Resolved]

NARRATIVE: CASE EVENT DATE: 20210729
